FAERS Safety Report 6913882-6 (Version None)
Quarter: 2010Q3

REPORT INFORMATION
  Report Type: 
  Country: None (occurrence: None)
  Receive Date: 20100809
  Receipt Date: 20100803
  Transmission Date: 20110219
  Serious: Yes (Other)
  Sender: FDA-Public Use
  Company Number: US-RB-023493-09

PATIENT
  Sex: Female

DRUGS (4)
  1. SUBOXONE [Suspect]
     Indication: DRUG DEPENDENCE
     Route: 060
     Dates: start: 20060801, end: 20090825
  2. SUBOXONE [Suspect]
     Route: 060
     Dates: start: 20100106, end: 20100201
  3. SUBUTEX [Suspect]
     Indication: DRUG DEPENDENCE
     Dosage: UNIT DOSE UNKNOWN
     Route: 060
     Dates: start: 20091026
  4. DEPO-PROVERA [Concomitant]
     Indication: CONTRACEPTION
     Dosage: DOSING DETAILS UNKNOWN
     Route: 065

REACTIONS (3)
  - ABORTION SPONTANEOUS [None]
  - DRUG EXPOSURE DURING PREGNANCY [None]
  - PREGNANCY WITH INJECTABLE CONTRACEPTIVE [None]
